FAERS Safety Report 4776562-1 (Version None)
Quarter: 2005Q3

REPORT INFORMATION
  Report Type: 
  Country: None (occurrence: None)
  Receive Date: 20050915
  Receipt Date: 20050905
  Transmission Date: 20060218
  Serious: Yes (Life-Threatening, Other)
  Sender: FDA-Public Use
  Company Number: 2005117876

PATIENT
  Age: 70 Year
  Sex: Male
  Weight: 68.5 kg

DRUGS (9)
  1. LONITEN                    (MONIXIDIL) [Suspect]
     Indication: HYPERTENSION
     Dosage: 5 MG (5 MG, DAILY) ORAL
     Route: 048
     Dates: start: 20050730
  2. VENOFER [Concomitant]
  3. OMEPRAZOLE [Concomitant]
  4. SECTRAL [Concomitant]
  5. FOLIC ACID [Concomitant]
  6. EPOETIN BETA (EPOETIN ALFA) [Concomitant]
  7. FUROSEMIDE [Concomitant]
  8. EUPRESSYL (URAPIDIL) [Concomitant]
  9. STILNOX (ZOLPIDEM) [Concomitant]

REACTIONS (1)
  - ANAEMIA [None]
